FAERS Safety Report 4485783-7 (Version None)
Quarter: 2004Q4

REPORT INFORMATION
  Report Type: 
  Country: None (occurrence: None)
  Receive Date: 20041026
  Receipt Date: 20041015
  Transmission Date: 20050328
  Serious: Yes (Death)
  Sender: FDA-Public Use
  Company Number: US-ROCHE-383906

PATIENT
  Age: 55 Year
  Sex: Male

DRUGS (3)
  1. MYCOPHENOLATE MOFETIL [Suspect]
     Route: 065
  2. CYCLOSPORINE [Concomitant]
  3. PREDNISONE [Concomitant]

REACTIONS (5)
  - ABSCESS [None]
  - CARDIAC ARREST [None]
  - DIVERTICULAR PERFORATION [None]
  - HYPOTENSION [None]
  - POST PROCEDURAL COMPLICATION [None]
